FAERS Safety Report 15723677 (Version 2)
Quarter: 2018Q4

REPORT INFORMATION
  Report Type: Spontaneous
  Country: IT (occurrence: IT)
  Receive Date: 20181214
  Receipt Date: 20181227
  Transmission Date: 20190205
  Serious: Yes (Other)
  Sender: FDA-Public Use
  Company Number: IT-OTSUKA-2018_038732

PATIENT
  Age: 12 Year
  Sex: Male

DRUGS (3)
  1. ABILIFY [Suspect]
     Active Substance: ARIPIPRAZOLE
     Dosage: UNK
     Route: 065
  2. ABILIFY [Suspect]
     Active Substance: ARIPIPRAZOLE
     Indication: MENTAL DISORDER
     Dosage: 15 MG, QD
     Route: 048
     Dates: start: 20170215, end: 20180404
  3. MAVERAL [Suspect]
     Active Substance: FLUVOXAMINE MALEATE
     Indication: MENTAL DISORDER
     Dosage: 100 MG, QD
     Route: 048
     Dates: start: 20170215, end: 20170404

REACTIONS (9)
  - Dandruff [Recovering/Resolving]
  - Product use in unapproved indication [Unknown]
  - Transaminases increased [Recovering/Resolving]
  - Abdominal pain upper [Recovering/Resolving]
  - Hepatic steatosis [Recovering/Resolving]
  - Hyperhidrosis [Recovering/Resolving]
  - Muscle spasms [Recovering/Resolving]
  - Myalgia [Recovering/Resolving]
  - Chest pain [Recovering/Resolving]

NARRATIVE: CASE EVENT DATE: 20170215
